FAERS Safety Report 17839711 (Version 2)
Quarter: 2020Q2

REPORT INFORMATION
  Report Type: Spontaneous
  Country: IT (occurrence: IT)
  Receive Date: 20200529
  Receipt Date: 20200619
  Transmission Date: 20200714
  Serious: Yes (Life-Threatening, Hospitalization, Other)
  Sender: FDA-Public Use
  Company Number: NVSC2020IT144725

PATIENT
  Age: 69 Year
  Sex: Male

DRUGS (2)
  1. PREDNISONE. [Concomitant]
     Active Substance: PREDNISONE
     Indication: PRODUCT USED FOR UNKNOWN INDICATION
     Dosage: UNK
     Route: 030
  2. CEFTRIAXONE. [Suspect]
     Active Substance: CEFTRIAXONE
     Indication: PRODUCT USED FOR UNKNOWN INDICATION
     Dosage: INTRAMUSCULAR THERAPY WITH CEFTRIAXONE.
     Route: 030

REACTIONS (3)
  - Arteriospasm coronary [Recovered/Resolved]
  - Coronary artery stenosis [Recovered/Resolved]
  - Kounis syndrome [Recovered/Resolved]
